FAERS Safety Report 5797891-9 (Version None)
Quarter: 2008Q3

REPORT INFORMATION
  Report Type: 
  Country: None (occurrence: None)
  Receive Date: 20080702
  Receipt Date: 20080630
  Transmission Date: 20090109
  Serious: Yes (Other)
  Sender: FDA-Public Use
  Company Number: US-RB-001647-08

PATIENT
  Sex: Female

DRUGS (3)
  1. SUBUTEX [Suspect]
     Route: 060
     Dates: start: 20080530
  2. SUBOXONE [Suspect]
     Route: 060
     Dates: start: 20070101, end: 20080501
  3. SUBOXONE [Suspect]
     Route: 060
     Dates: start: 20080501, end: 20080529

REACTIONS (2)
  - ABORTION SPONTANEOUS [None]
  - DRUG EXPOSURE DURING PREGNANCY [None]
